FAERS Safety Report 11610699 (Version 1)
Quarter: 2015Q4

REPORT INFORMATION
  Report Type: Spontaneous
  Country: US (occurrence: US)
  Receive Date: 20151008
  Receipt Date: 20151008
  Transmission Date: 20160304
  Serious: Yes (Other)
  Sender: FDA-Public Use
  Company Number: US-SUN PHARMACEUTICAL INDUSTRIES LTD-2013SUN00190

PATIENT

DRUGS (2)
  1. ANASTRAZOLE TABLETS 1MG [Suspect]
     Active Substance: ANASTROZOLE
     Indication: BREAST CANCER
     Dosage: UNK
     Route: 065
     Dates: start: 20110820, end: 201111
  2. LETROZOLE. [Suspect]
     Active Substance: LETROZOLE
     Indication: BREAST CANCER
     Dosage: UNK
     Route: 065
     Dates: start: 201111, end: 20111115

REACTIONS (4)
  - Depression [Recovering/Resolving]
  - Suicidal ideation [Recovered/Resolved]
  - Pain [Recovering/Resolving]
  - Mood swings [Recovered/Resolved]

NARRATIVE: CASE EVENT DATE: 2011
